FAERS Safety Report 14402932 (Version 4)
Quarter: 2019Q3

REPORT INFORMATION
  Report Type: Spontaneous
  Country: JP (occurrence: JP)
  Receive Date: 20180117
  Receipt Date: 20190703
  Transmission Date: 20191004
  Serious: Yes (Life-Threatening, Hospitalization, Other)
  Sender: FDA-Public Use
  Company Number: JP-PFIZER INC-2018019968

PATIENT
  Age: 78 Year
  Sex: Male

DRUGS (6)
  1. BENET [Concomitant]
     Active Substance: RISEDRONATE SODIUM
     Indication: RHEUMATOID ARTHRITIS
     Dosage: 17.5 MG, WEEKLY
     Route: 048
  2. ACTEMRA [Suspect]
     Active Substance: TOCILIZUMAB
     Indication: RHEUMATOID ARTHRITIS
     Dosage: 162 MG, CYCLIC (EVERY 2 WEEKS)
     Route: 058
  3. FOLIAMIN [Concomitant]
     Active Substance: FOLIC ACID
     Indication: RHEUMATOID ARTHRITIS
     Dosage: 5 MG, WEEKLY
     Route: 048
  4. RHEUMATREX [Suspect]
     Active Substance: METHOTREXATE SODIUM
     Indication: RHEUMATOID ARTHRITIS
     Dosage: 6 MG, WEEKLY, IN THE MORNING 2 CAPSULES, IN THE EVENING 1 CAPSULE
     Route: 048
     Dates: end: 20171204
  5. ACTEMRA [Suspect]
     Active Substance: TOCILIZUMAB
     Dosage: UNK, CYCLIC (EVERY 6 WEEK)
     Route: 058
  6. PREDNISOLONE. [Concomitant]
     Active Substance: PREDNISOLONE
     Indication: RHEUMATOID ARTHRITIS
     Dosage: 2.5 MG, DAILY
     Route: 048

REACTIONS (3)
  - Colon cancer [Recovered/Resolved with Sequelae]
  - Drug ineffective [Unknown]
  - Appendicitis [Recovered/Resolved]

NARRATIVE: CASE EVENT DATE: 20171118
